FAERS Safety Report 7948521-9 (Version None)
Quarter: 2011Q4

REPORT INFORMATION
  Report Type: 
  Country: None (occurrence: None)
  Receive Date: 20111126
  Receipt Date: 20111126
  Transmission Date: 20120403
  Serious: Yes (Hospitalization)
  Sender: FDA-Public Use
  Company Number: None

PATIENT
  Sex: Female
  Weight: 42.6 kg

DRUGS (2)
  1. SANDOSTATIN [Suspect]
     Dosage: 20 MG
     Dates: end: 20111115
  2. AFINITOR [Suspect]
     Dosage: 30 MG
     Dates: end: 20111116

REACTIONS (4)
  - BRAIN OEDEMA [None]
  - THALAMUS HAEMORRHAGE [None]
  - FALL [None]
  - INTRAVENTRICULAR HAEMORRHAGE [None]
